FAERS Safety Report 5302005-5 (Version None)
Quarter: 2007Q2

REPORT INFORMATION
  Report Type: 
  Country: None (occurrence: None)
  Receive Date: 20070416
  Receipt Date: 20070416
  Transmission Date: 20071010
  Serious: Yes (Life-Threatening, Hospitalization)
  Sender: FDA-Public Use
  Company Number: None

PATIENT
  Age: 50 Year
  Sex: Female
  Weight: 95.2554 kg

DRUGS (2)
  1. ANTIBIOTIC + PAIN RELIEF OINTMENT (BACITRACIN ZINC 500 UNITS/GRAM)  CV [Suspect]
     Indication: INFECTION PROPHYLAXIS
     Dosage: COVERED OPEN WOUND   ONCE   TOP
     Route: 061
  2. ANTIBIOTIC + PAIN RELIEF OINTMENT (BACITRACIN ZINC 500 UNITS/GRAM)  CV [Suspect]
     Indication: WOUND
     Dosage: COVERED OPEN WOUND   ONCE   TOP
     Route: 061

REACTIONS (1)
  - ANAPHYLACTIC SHOCK [None]
